FAERS Safety Report 9062789 (Version 1)
Quarter: 2013Q1

REPORT INFORMATION
  Report Type: Spontaneous
  Country: US (occurrence: US)
  Receive Date: 20130128
  Receipt Date: 20130128
  Transmission Date: 20140127
  Serious: Yes (Other)
  Sender: FDA-Public Use
  Company Number: US-BRISTOL-MYERS SQUIBB COMPANY-17315730

PATIENT
  Sex: Female

DRUGS (6)
  1. ABILIFY [Suspect]
     Indication: DEPRESSION
  2. ABILIFY [Suspect]
     Indication: ATTENTION DEFICIT/HYPERACTIVITY DISORDER
  3. CYMBALTA [Concomitant]
  4. IMIPRAMINE [Concomitant]
  5. TRAZODONE HCL [Concomitant]
  6. DEXAMETHASONE [Concomitant]
     Dosage: DEXTRAZINE IR 10MG

REACTIONS (2)
  - Hallucination [Recovered/Resolved]
  - Delusion [Recovered/Resolved]
